FAERS Safety Report 17454102 (Version 1)
Quarter: 2020Q1

REPORT INFORMATION
  Report Type: Spontaneous
  Country: NG (occurrence: NG)
  Receive Date: 20200224
  Receipt Date: 20200224
  Transmission Date: 20200409
  Serious: Yes (Disabling)
  Sender: FDA-Public Use
  Company Number: None

PATIENT
  Sex: Female

DRUGS (1)
  1. IVYFLUR FLURBIPROFEN OPHTHALMIC [Suspect]
     Active Substance: FLURBIPROFEN

REACTIONS (5)
  - Ocular hyperaemia [None]
  - Pain [None]
  - Eye pain [None]
  - Vision blurred [None]
  - Condition aggravated [None]

NARRATIVE: CASE EVENT DATE: 20200223
